FAERS Safety Report 20885400 (Version 1)
Quarter: 2022Q2

REPORT INFORMATION
  Report Type: Spontaneous
  Country: KZ (occurrence: KZ)
  Receive Date: 20220527
  Receipt Date: 20220527
  Transmission Date: 20220720
  Serious: Yes (Other)
  Sender: FDA-Public Use
  Company Number: KZ-TAKEDA-2022TUS034901

PATIENT
  Age: 39 Year
  Sex: Male

DRUGS (5)
  1. ENTYVIO [Suspect]
     Active Substance: VEDOLIZUMAB
     Indication: Colitis ulcerative
     Dosage: UNK
     Route: 042
     Dates: start: 20211122
  2. ENTYVIO [Suspect]
     Active Substance: VEDOLIZUMAB
     Indication: Cholangitis sclerosing
     Dosage: UNK
     Route: 042
     Dates: start: 20211206
  3. ENTYVIO [Suspect]
     Active Substance: VEDOLIZUMAB
     Indication: Drug intolerance
     Dosage: UNK
     Route: 042
     Dates: start: 20220103
  4. ENTYVIO [Suspect]
     Active Substance: VEDOLIZUMAB
     Dosage: UNK
     Route: 042
     Dates: start: 20220131
  5. ENTYVIO [Suspect]
     Active Substance: VEDOLIZUMAB
     Dosage: UNK
     Route: 042
     Dates: start: 202202

REACTIONS (1)
  - Hepatic cytolysis [Unknown]
